FAERS Safety Report 17588289 (Version 2)
Quarter: 2020Q2

REPORT INFORMATION
  Report Type: Spontaneous
  Country: GB (occurrence: GB)
  Receive Date: 20200327
  Receipt Date: 20200505
  Transmission Date: 20200713
  Serious: Yes (Hospitalization)
  Sender: FDA-Public Use
  Company Number: GB-SUN PHARMACEUTICAL INDUSTRIES LTD-2020RR-241698

PATIENT
  Age: 77 Year
  Sex: Female

DRUGS (11)
  1. SUMATRIPTAN. [Suspect]
     Active Substance: SUMATRIPTAN
     Dosage: 200 MILLIGRAM, DAILY
     Route: 048
     Dates: start: 20200222, end: 20200222
  2. ACETYLSALICYLIC ACID [Suspect]
     Active Substance: ASPIRIN
     Indication: MIGRAINE
  3. SUMATRIPTAN. [Suspect]
     Active Substance: SUMATRIPTAN
     Indication: MIGRAINE
     Dosage: 100 MILLIGRAM
     Route: 048
     Dates: start: 20200223, end: 20200223
  4. ONDANSETRON [Concomitant]
     Active Substance: ONDANSETRON
     Indication: PRODUCT USED FOR UNKNOWN INDICATION
     Dosage: UNK
     Route: 065
     Dates: start: 20200222
  5. MORPHINE [Concomitant]
     Active Substance: MORPHINE
     Indication: PRODUCT USED FOR UNKNOWN INDICATION
     Dosage: UNK
     Route: 065
     Dates: start: 20200222
  6. ATORVASTATIN CALCIUM. [Concomitant]
     Active Substance: ATORVASTATIN CALCIUM
     Indication: PRODUCT USED FOR UNKNOWN INDICATION
     Dosage: 10 MILLIGRAMS, DAILY
     Route: 065
  7. ADCAL-D3 [Concomitant]
     Active Substance: CALCIUM CARBONATE\CHOLECALCIFEROL
     Indication: PRODUCT USED FOR UNKNOWN INDICATION
     Dosage: 4 DOSAGE FORM, DAILY
     Route: 065
  8. ACETYLSALICYLIC ACID [Suspect]
     Active Substance: ASPIRIN
     Indication: MIGRAINE
     Dosage: 600 MILLIGRAMS, UNK
     Route: 048
     Dates: start: 20200222, end: 20200222
  9. LEVOTHYROXINE. [Concomitant]
     Active Substance: LEVOTHYROXINE
     Indication: PRODUCT USED FOR UNKNOWN INDICATION
     Dosage: 25 MICROGRAM, DAILY
     Route: 065
  10. SUMATRIPTAN. [Suspect]
     Active Substance: SUMATRIPTAN
     Indication: MIGRAINE
     Dosage: 6 MILLIGRAMS, UNK
     Route: 058
     Dates: start: 20200222, end: 20200222
  11. LANSOPRAZOLE. [Concomitant]
     Active Substance: LANSOPRAZOLE
     Indication: PRODUCT USED FOR UNKNOWN INDICATION
     Dosage: 15 MILLIGRAMS, DAILY
     Route: 065

REACTIONS (1)
  - Anal haemorrhage [Recovering/Resolving]

NARRATIVE: CASE EVENT DATE: 20200224
